FAERS Safety Report 6191314-6 (Version None)
Quarter: 2009Q2

REPORT INFORMATION
  Report Type: 
  Country: None (occurrence: None)
  Receive Date: 20090515
  Receipt Date: 20090508
  Transmission Date: 20091009
  Serious: No
  Sender: FDA-Public Use
  Company Number: CR-ROCHE-632074

PATIENT
  Age: 21 Year
  Sex: Female

DRUGS (1)
  1. ROACCUTANE [Suspect]
     Indication: ACNE
     Dosage: DRUG WAS STOPPED IN 2009.
     Route: 048
     Dates: start: 20090101

REACTIONS (2)
  - NO ADVERSE EVENT [None]
  - PREGNANCY [None]
